FAERS Safety Report 6151105-9 (Version None)
Quarter: 2009Q2

REPORT INFORMATION
  Report Type: 
  Country: None (occurrence: None)
  Receive Date: 20090410
  Receipt Date: 20090331
  Transmission Date: 20091009
  Serious: Yes (Other)
  Sender: FDA-Public Use
  Company Number: US-PFIZER INC-2006081391

PATIENT
  Sex: Female
  Weight: 70 kg

DRUGS (6)
  1. PROVERA [Suspect]
     Indication: HORMONE REPLACEMENT THERAPY
     Dosage: UNK
     Route: 048
     Dates: start: 19880701, end: 19950601
  2. MEDROXYPROGESTERONE AND MEDROXYPROGESTERONE ACETATE [Suspect]
     Indication: HORMONE REPLACEMENT THERAPY
     Route: 048
     Dates: start: 19880101, end: 19990901
  3. PREMARIN [Suspect]
     Indication: HORMONE REPLACEMENT THERAPY
     Dosage: UNK
     Route: 065
     Dates: start: 19910101, end: 19990901
  4. TENORMIN [Concomitant]
     Indication: ARRHYTHMIA
     Dosage: 50 MG, 1X/DAY
     Dates: start: 19880101
  5. EFFEXOR [Concomitant]
     Indication: HOT FLUSH
     Dosage: UNK
     Dates: start: 19750101
  6. EFFEXOR [Concomitant]
     Indication: DEPRESSION

REACTIONS (1)
  - BREAST CANCER FEMALE [None]
